FAERS Safety Report 24382971 (Version 1)
Quarter: 2024Q4

REPORT INFORMATION
  Report Type: Report from Study
  Country: CA (occurrence: CA)
  Receive Date: 20241001
  Receipt Date: 20241001
  Transmission Date: 20250115
  Serious: Yes (Other)
  Sender: MYLAN
  Company Number: CA-MYLANLABS-202200957459

PATIENT
  Age: 48 Year
  Sex: Male

DRUGS (14)
  1. PREGABALIN [Suspect]
     Active Substance: PREGABALIN
     Indication: Secondary progressive multiple sclerosis
     Dosage: 300 MILLIGRAM, BID (2 EVERY 1 DAYS)
     Route: 065
  2. DULOXETINE HYDROCHLORIDE [Suspect]
     Active Substance: DULOXETINE HYDROCHLORIDE
     Indication: Secondary progressive multiple sclerosis
     Dosage: 60 MILLIGRAM, QD (1 EVERY 1 DAYS)
     Route: 065
  3. MAYZENT [Suspect]
     Active Substance: SIPONIMOD
     Indication: Secondary progressive multiple sclerosis
     Dosage: UNK
     Route: 048
  4. AUBAGIO [Concomitant]
     Active Substance: TERIFLUNOMIDE
     Dosage: UNK
     Route: 065
  5. CANNABIS SATIVA FLOWERING TOP [Concomitant]
     Active Substance: CANNABIS SATIVA FLOWERING TOP
     Dosage: UNK
     Route: 065
  6. CANNABIS SATIVA FLOWERING TOP [Concomitant]
     Active Substance: CANNABIS SATIVA FLOWERING TOP
     Dosage: UNK UNK, QD (1 EVERY 1 DAY)
     Route: 065
  7. ESCITALOPRAM [Concomitant]
     Active Substance: ESCITALOPRAM OXALATE
     Dosage: 10 MILLIGRAM, QD (1 EVERY 1 DAY)
     Route: 065
  8. LAMOTRIGINE [Concomitant]
     Active Substance: LAMOTRIGINE
     Dosage: 25 MILLIGRAM, BID (2 EVERY 1 DAY)
     Route: 065
  9. MAGNESIUM [Concomitant]
     Active Substance: MAGNESIUM
     Dosage: 500 MILLIGRAM, QD (1 EVERY 1 DAY)
     Route: 065
  10. MODAFINIL [Concomitant]
     Active Substance: MODAFINIL
     Dosage: 100 MILLIGRAM, BID (2 EVERY 1 DAY)
     Route: 065
  11. OMEGA 3 [Concomitant]
     Active Substance: CAPSAICIN
     Dosage: 500 MILLIGRAM, QD ( 1 EVERY 1 DAY)
     Route: 065
  12. HERBALS\TURMERIC [Concomitant]
     Active Substance: HERBALS\TURMERIC
     Dosage: 500 MILLIGRAM, QD ( 1 EVERY 1 DAY)
     Route: 065
  13. HERBALS\TURMERIC [Concomitant]
     Active Substance: HERBALS\TURMERIC
     Dosage: 12500 MILLIGRAM, QD ( 1 EVERY 1 DAY)
     Route: 065
  14. VITAMIN B12 [Concomitant]
     Active Substance: CYANOCOBALAMIN
     Dosage: 1000 MICROGRAM, QD ( 1 EVERY 1 DAY)
     Route: 065

REACTIONS (12)
  - Arrhythmia [Recovering/Resolving]
  - Blood pressure increased [Recovering/Resolving]
  - Cerebrovascular accident [Recovering/Resolving]
  - Fatigue [Recovering/Resolving]
  - Infection [Recovering/Resolving]
  - Trigeminal neuralgia [Recovering/Resolving]
  - Movement disorder [Recovering/Resolving]
  - Musculoskeletal pain [Recovering/Resolving]
  - Electric shock sensation [Recovering/Resolving]
  - Visual impairment [Recovering/Resolving]
  - Pyrexia [Recovering/Resolving]
  - Product dose omission issue [Recovering/Resolving]
